FAERS Safety Report 20629709 (Version 1)
Quarter: 2022Q1

REPORT INFORMATION
  Report Type: Report from Study
  Country: CO (occurrence: CO)
  Receive Date: 20220323
  Receipt Date: 20220323
  Transmission Date: 20220423
  Serious: Yes (Other)
  Sender: FDA-Public Use
  Company Number: CO-ABBVIE-22K-036-4323668-00

PATIENT
  Sex: Female
  Weight: 63 kg

DRUGS (4)
  1. HUMIRA [Suspect]
     Active Substance: ADALIMUMAB
     Indication: Uveitis
     Route: 058
     Dates: end: 20220126
  2. HUMIRA [Suspect]
     Active Substance: ADALIMUMAB
     Indication: Uveitis
     Route: 058
     Dates: start: 20180126
  3. LORATADINE [Concomitant]
     Active Substance: LORATADINE
     Indication: Rhinitis
     Route: 048
  4. CETIRIZINE [Concomitant]
     Active Substance: CETIRIZINE HYDROCHLORIDE
     Indication: Rhinitis
     Dosage: 1 UNIT DOSE IN THE MORNING AND AT NIGHT
     Route: 048

REACTIONS (7)
  - Depression [Recovered/Resolved]
  - Rhinorrhoea [Recovered/Resolved]
  - Productive cough [Not Recovered/Not Resolved]
  - Rhinitis [Recovering/Resolving]
  - Suspected COVID-19 [Recovered/Resolved]
  - Pain [Recovered/Resolved]
  - Chest pain [Recovered/Resolved]

NARRATIVE: CASE EVENT DATE: 20210101
